FAERS Safety Report 11325137 (Version 1)
Quarter: 2015Q3

REPORT INFORMATION
  Report Type: Spontaneous
  Country: JP (occurrence: JP)
  Receive Date: 20150730
  Receipt Date: 20150730
  Transmission Date: 20151125
  Serious: Yes (Other)
  Sender: FDA-Public Use
  Company Number: JP-MYLANLABS-2015M1023181

PATIENT

DRUGS (7)
  1. DEXAMETHASONE. [Concomitant]
     Active Substance: DEXAMETHASONE
     Route: 065
  2. DIPHENHYDRAMINE. [Suspect]
     Active Substance: DIPHENHYDRAMINE
     Indication: PRODUCT USED FOR UNKNOWN INDICATION
     Route: 065
  3. GRANISETRON [Concomitant]
     Active Substance: GRANISETRON
     Route: 065
  4. PACLITAXEL. [Concomitant]
     Active Substance: PACLITAXEL
  5. RANITIDINE [Concomitant]
     Active Substance: RANITIDINE\RANITIDINE HYDROCHLORIDE
     Route: 065
  6. CARBOPLATIN. [Suspect]
     Active Substance: CARBOPLATIN
     Indication: OVARIAN CANCER STAGE III
     Route: 041
  7. GLUCOSE [Concomitant]
     Active Substance: DEXTROSE
     Dosage: 250ML OF 5%
     Route: 065

REACTIONS (8)
  - Paraesthesia [Recovered/Resolved]
  - Pruritus [Recovered/Resolved]
  - Hypoxia [Unknown]
  - Hypersensitivity [Recovered/Resolved]
  - Cold sweat [Recovered/Resolved]
  - Nausea [Unknown]
  - Diarrhoea [Unknown]
  - Rash [Recovered/Resolved]
